FAERS Safety Report 8391546-2 (Version None)
Quarter: 2012Q2

REPORT INFORMATION
  Report Type: 
  Country: None (occurrence: None)
  Receive Date: 20120529
  Receipt Date: 20120517
  Transmission Date: 20120825
  Serious: Yes (Death)
  Sender: FDA-Public Use
  Company Number: US-SANOFI-AVENTIS-2012SA035156

PATIENT
  Age: 50 Year
  Sex: Female

DRUGS (3)
  1. AMBIEN [Suspect]
  2. PERCOCET [Concomitant]
  3. OXYCONTIN [Suspect]

REACTIONS (1)
  - DEATH [None]
